FAERS Safety Report 21539422 (Version 1)
Quarter: 2022Q4

REPORT INFORMATION
  Report Type: Spontaneous
  Country: US (occurrence: US)
  Receive Date: 20221102
  Receipt Date: 20221102
  Transmission Date: 20230113
  Serious: No
  Sender: FDA-Public Use
  Company Number: US-SUN PHARMACEUTICAL INDUSTRIES LTD-2022R1-329924

PATIENT
  Sex: Female

DRUGS (2)
  1. XELPROS [Suspect]
     Active Substance: LATANOPROST
     Indication: Product used for unknown indication
     Dosage: UNK, AT NIGHT
     Route: 047
     Dates: start: 202112
  2. COSOPT [Concomitant]
     Active Substance: DORZOLAMIDE HYDROCHLORIDE\TIMOLOL MALEATE
     Indication: Product used for unknown indication
     Dosage: UNK, AT MORNING
     Route: 065

REACTIONS (2)
  - Vision blurred [Unknown]
  - Eye irritation [Unknown]
